FAERS Safety Report 5380216-0 (Version None)
Quarter: 2007Q3

REPORT INFORMATION
  Report Type: 
  Country: None (occurrence: None)
  Receive Date: 20070706
  Receipt Date: 20070511
  Transmission Date: 20080115
  Serious: No
  Sender: FDA-Public Use
  Company Number: A0651020A

PATIENT
  Age: 56 Year
  Sex: Female

DRUGS (7)
  1. TYKERB [Suspect]
     Indication: BREAST CANCER
     Dosage: 1250MG PER DAY
     Route: 048
     Dates: start: 20070405
  2. XELODA [Suspect]
  3. XELODA [Concomitant]
  4. GLUCOSAMINE/CHONDROITIN [Concomitant]
  5. CALCIUM WITH VITAMIN D [Concomitant]
  6. MAGNESIUM SULFATE [Concomitant]
  7. ZINC [Concomitant]

REACTIONS (4)
  - DIARRHOEA [None]
  - FATIGUE [None]
  - NAUSEA [None]
  - PAIN [None]
